FAERS Safety Report 7703971-0 (Version None)
Quarter: 2011Q3

REPORT INFORMATION
  Report Type: 
  Country: None (occurrence: None)
  Receive Date: 20110823
  Receipt Date: 20110817
  Transmission Date: 20111222
  Serious: Yes (Hospitalization, Other)
  Sender: FDA-Public Use
  Company Number: JP-ROCHE-797952

PATIENT
  Age: 72 Year
  Sex: Female
  Weight: 39 kg

DRUGS (5)
  1. ROCEPHIN [Suspect]
     Indication: ENDOCARDITIS
     Route: 042
     Dates: start: 20110518, end: 20110629
  2. CARVEDILOL [Concomitant]
     Route: 048
  3. AMIODARONE HCL [Concomitant]
     Route: 048
  4. ASPIRIN [Suspect]
     Indication: HEART VALVE OPERATION
     Route: 048
     Dates: start: 20110509, end: 20110704
  5. LASIX [Concomitant]
     Route: 065

REACTIONS (2)
  - AGRANULOCYTOSIS [None]
  - TOXIC ENCEPHALOPATHY [None]
